FAERS Safety Report 25319775 (Version 1)
Quarter: 2025Q2

REPORT INFORMATION
  Report Type: Spontaneous
  Country: ES (occurrence: ES)
  Receive Date: 20250515
  Receipt Date: 20250515
  Transmission Date: 20250716
  Serious: Yes (Other)
  Sender: ELI LILLY AND COMPANY
  Company Number: ES-ELI_LILLY_AND_COMPANY-ES202503022483

PATIENT
  Age: 69 Year
  Sex: Male
  Weight: 76 kg

DRUGS (2)
  1. CIALIS [Suspect]
     Active Substance: TADALAFIL
     Indication: Product used for unknown indication
     Route: 065
     Dates: start: 2021
  2. CIALIS [Suspect]
     Active Substance: TADALAFIL
     Route: 065

REACTIONS (4)
  - Prostatomegaly [Unknown]
  - Phimosis [Unknown]
  - Drug ineffective [Unknown]
  - Erectile dysfunction [Unknown]
